FAERS Safety Report 7285942-4 (Version None)
Quarter: 2011Q1

REPORT INFORMATION
  Report Type: 
  Country: None (occurrence: None)
  Receive Date: 20110210
  Receipt Date: 20110204
  Transmission Date: 20110831
  Serious: Yes (Hospitalization, Disabling, Other)
  Sender: FDA-Public Use
  Company Number: US-MERCK-1002USA00785

PATIENT
  Age: 53 Year
  Sex: Female
  Weight: 58 kg

DRUGS (6)
  1. FIORICET [Concomitant]
     Indication: MIGRAINE
     Route: 065
     Dates: start: 19960101
  2. VICODIN [Concomitant]
     Indication: MIGRAINE
     Route: 065
     Dates: start: 19960101
  3. ZOLOFT [Concomitant]
     Indication: DEPRESSION
     Route: 065
     Dates: start: 19960101
  4. LIPITOR [Concomitant]
     Indication: BLOOD CHOLESTEROL INCREASED
     Route: 065
     Dates: start: 20000101
  5. FOSAMAX [Suspect]
     Indication: OSTEOPENIA
     Route: 048
     Dates: start: 20011128, end: 20081113
  6. ZOLOFT [Concomitant]
     Indication: BRAIN INJURY
     Route: 065
     Dates: start: 19960101

REACTIONS (55)
  - MALIGNANT MELANOMA [None]
  - OSTEOARTHRITIS [None]
  - GASTROOESOPHAGEAL REFLUX DISEASE [None]
  - GASTRIC ULCER [None]
  - FATIGUE [None]
  - SENSITIVITY OF TEETH [None]
  - TOOTH DISORDER [None]
  - CERVICAL DYSPLASIA [None]
  - ANXIETY [None]
  - BREAST CALCIFICATIONS [None]
  - DEPRESSION [None]
  - SKIN IRRITATION [None]
  - BURNING SENSATION [None]
  - FEMUR FRACTURE [None]
  - HAEMORRHOIDS [None]
  - TENDON DISORDER [None]
  - MUSCULOSKELETAL PAIN [None]
  - RESPIRATORY DISORDER [None]
  - TORTICOLLIS [None]
  - PAPILLOMA VIRAL INFECTION [None]
  - CHEST PAIN [None]
  - APPENDIX DISORDER [None]
  - HYPERPHAGIA [None]
  - SCIATICA [None]
  - RECTAL POLYP [None]
  - VULVOVAGINAL CANDIDIASIS [None]
  - UPPER GASTROINTESTINAL HAEMORRHAGE [None]
  - TOOTH RESORPTION [None]
  - PALPITATIONS [None]
  - DENTAL CARIES [None]
  - BONE DENSITY DECREASED [None]
  - OSTEOPOROSIS [None]
  - CARDIAC MURMUR [None]
  - TOOTH FRACTURE [None]
  - ORAL DISORDER [None]
  - OVERDOSE [None]
  - DIVERTICULUM [None]
  - EFFUSION [None]
  - PAIN IN EXTREMITY [None]
  - MYOFASCIAL PAIN SYNDROME [None]
  - MIGRAINE [None]
  - COSTOCHONDRITIS [None]
  - INAPPROPRIATE SCHEDULE OF DRUG ADMINISTRATION [None]
  - FIBROMYALGIA [None]
  - DRUG HYPERSENSITIVITY [None]
  - MENOPAUSAL SYMPTOMS [None]
  - FIBROCYSTIC BREAST DISEASE [None]
  - LOW TURNOVER OSTEOPATHY [None]
  - ROTATOR CUFF SYNDROME [None]
  - COLONIC POLYP [None]
  - SWELLING FACE [None]
  - SLEEP DISORDER [None]
  - WEIGHT INCREASED [None]
  - BURSITIS [None]
  - TOOTHACHE [None]
